FAERS Safety Report 11008277 (Version 2)
Quarter: 2016Q2

REPORT INFORMATION
  Report Type: Spontaneous
  Country: DK (occurrence: DK)
  Receive Date: 20150410
  Receipt Date: 20160617
  Transmission Date: 20160815
  Serious: Yes (Hospitalization)
  Sender: FDA-Public Use
  Company Number: DK-ROCHE-1562105

PATIENT
  Age: 86 Year
  Sex: Female

DRUGS (2)
  1. XGEVA [Suspect]
     Active Substance: DENOSUMAB
     Indication: METASTASES TO BONE
     Dosage: LAST DOSE PRIOR TO EVENT ON 01/FEB/2015,
     Route: 058
     Dates: start: 20130101, end: 20150201
  2. BONDRONAT [Suspect]
     Active Substance: IBANDRONIC ACID
     Indication: METASTASES TO BONE
     Dosage: MOST RECENT DOSE ON 01/JAN/2013
     Route: 065
     Dates: start: 20050101, end: 20130101

REACTIONS (4)
  - Osteonecrosis of jaw [Recovering/Resolving]
  - Pain [Unknown]
  - Sequestrectomy [Recovered/Resolved]
  - Tooth extraction [Unknown]

NARRATIVE: CASE EVENT DATE: 20150218
